FAERS Safety Report 6315765-1 (Version None)
Quarter: 2009Q3

REPORT INFORMATION
  Report Type: 
  Country: None (occurrence: None)
  Receive Date: 20090820
  Receipt Date: 20090812
  Transmission Date: 20100115
  Serious: Yes (Hospitalization)
  Sender: FDA-Public Use
  Company Number: US-BIOGENIDEC-2009BI016511

PATIENT
  Age: 61 Year
  Sex: Female

DRUGS (1)
  1. TYSABRI [Suspect]
     Indication: MULTIPLE SCLEROSIS
     Route: 042
     Dates: start: 20070706

REACTIONS (5)
  - ACCIDENTAL OVERDOSE [None]
  - CONFUSIONAL AROUSAL [None]
  - HEADACHE [None]
  - LOSS OF CONSCIOUSNESS [None]
  - POOR QUALITY SLEEP [None]
